FAERS Safety Report 9747506 (Version 1)
Quarter: 2013Q4

REPORT INFORMATION
  Report Type: Report from Study
  Country: US (occurrence: US)
  Receive Date: 20131212
  Receipt Date: 20131212
  Transmission Date: 20140711
  Serious: Yes (Death)
  Sender: FDA-Public Use
  Company Number: US-ROCHE-1318315

PATIENT
  Sex: Female

DRUGS (7)
  1. AVASTIN [Suspect]
     Indication: FALLOPIAN TUBE CANCER
     Route: 065
     Dates: start: 20120608
  2. AVASTIN [Suspect]
     Indication: METASTASES TO LUNG
     Dosage: PAST THERAPY
     Route: 065
     Dates: end: 201102
  3. CARBOPLATIN [Concomitant]
     Dosage: CURRENT THERAPY
     Route: 065
  4. CARBOPLATIN [Concomitant]
     Dosage: PAST THERAPY
     Route: 065
  5. TOPOTECAN [Concomitant]
  6. NAVELBINE [Concomitant]
  7. ABRAXANE [Concomitant]

REACTIONS (2)
  - Disease progression [Fatal]
  - Off label use [Unknown]
